FAERS Safety Report 7591626-5 (Version None)
Quarter: 2011Q3

REPORT INFORMATION
  Report Type: 
  Country: None (occurrence: None)
  Receive Date: 20110706
  Receipt Date: 20110620
  Transmission Date: 20111222
  Serious: Yes (Other)
  Sender: FDA-Public Use
  Company Number: US-BAYER-201041723NA

PATIENT
  Age: 18 Year
  Sex: Female
  Weight: 91 kg

DRUGS (8)
  1. YASMIN [Suspect]
     Indication: PRODUCT USED FOR UNKNOWN INDICATION
     Dosage: UNK UNK, UNK
     Route: 048
     Dates: start: 20020501, end: 20090701
  2. YAZ [Suspect]
     Indication: PRODUCT USED FOR UNKNOWN INDICATION
     Route: 048
  3. NAPROXEN (ALEVE) [Concomitant]
     Indication: PAIN
     Dosage: UNK
     Dates: start: 20080117
  4. CIPROFLOXACIN [Concomitant]
     Dosage: UNK
     Dates: start: 20080101
  5. DILAUDID [Concomitant]
     Dosage: UNK
     Dates: start: 20080117
  6. REGLAN [Concomitant]
     Dosage: UNK
     Dates: start: 20080117
  7. DROSPIRENONE AND ETHINYL ESTRADIOL [Suspect]
     Dosage: UNK
     Dates: start: 20020501, end: 20090701
  8. DICYCLOMINE [Concomitant]
     Dosage: UNK
     Dates: start: 20080101

REACTIONS (2)
  - CHOLELITHIASIS [None]
  - CHOLECYSTECTOMY [None]
